FAERS Safety Report 5448411-X (Version None)
Quarter: 2007Q3

REPORT INFORMATION
  Report Type: 
  Country: None (occurrence: None)
  Receive Date: 20070906
  Receipt Date: 20070823
  Transmission Date: 20080115
  Serious: Yes (Life-Threatening, Hospitalization)
  Sender: FDA-Public Use
  Company Number: 2007S1005799

PATIENT
  Age: 44 Year
  Sex: Male

DRUGS (3)
  1. CLOZAPINE [Suspect]
     Indication: SCHIZOPHRENIA
     Dosage: 800 MG; DAILY; ORAL, 600 MG; DAILY; ORAL
     Route: 048
     Dates: start: 20070601, end: 20070809
  2. CLOZAPINE [Suspect]
     Indication: SCHIZOPHRENIA
     Dosage: 800 MG; DAILY; ORAL, 600 MG; DAILY; ORAL
     Route: 048
     Dates: start: 20060101
  3. HALOPERIDOL [Concomitant]

REACTIONS (6)
  - AGRANULOCYTOSIS [None]
  - CHILLS [None]
  - GRANULOCYTOPENIA [None]
  - LEUKOPENIA [None]
  - MUSCLE RIGIDITY [None]
  - PYREXIA [None]
